FAERS Safety Report 4646534-6 (Version None)
Quarter: 2005Q2

REPORT INFORMATION
  Report Type: 
  Country: None (occurrence: None)
  Receive Date: 20050427
  Receipt Date: 20040920
  Transmission Date: 20051028
  Serious: No
  Sender: FDA-Public Use
  Company Number: US-GLAXOSMITHKLINE-A0526440A

PATIENT
  Sex: Female

DRUGS (4)
  1. FLOVENT [Suspect]
     Indication: ASTHMA
     Dosage: 2PUFF TWICE PER DAY
     Route: 055
     Dates: start: 20030901
  2. SEREVENT [Suspect]
     Indication: ASTHMA
     Route: 055
     Dates: start: 20020101, end: 20020101
  3. ALBUTEROL [Concomitant]
  4. INTAL [Concomitant]

REACTIONS (3)
  - CANDIDIASIS [None]
  - NERVOUSNESS [None]
  - TREMOR [None]
